FAERS Safety Report 6574982-6 (Version None)
Quarter: 2010Q1

REPORT INFORMATION
  Report Type: 
  Country: None (occurrence: None)
  Receive Date: 20100209
  Receipt Date: 20100205
  Transmission Date: 20100710
  Serious: Yes (Death, Hospitalization)
  Sender: FDA-Public Use
  Company Number: PHHY2009BR48790

PATIENT
  Sex: Male

DRUGS (1)
  1. EXELON [Suspect]
     Indication: DEMENTIA ALZHEIMER'S TYPE
     Dosage: 9MG/5CM2, 1 PATCH PER DAY
     Route: 062

REACTIONS (9)
  - ASPIRATION BRONCHIAL [None]
  - CARDIAC FAILURE [None]
  - CARDIOGENIC SHOCK [None]
  - CHOKING [None]
  - DYSPNOEA [None]
  - PARKINSON'S DISEASE [None]
  - PNEUMONIA [None]
  - SEPTIC SHOCK [None]
  - VOMITING [None]
